FAERS Safety Report 8608307-9 (Version None)
Quarter: 2012Q3

REPORT INFORMATION
  Report Type: 
  Country: None (occurrence: None)
  Receive Date: 20120821
  Receipt Date: 20120810
  Transmission Date: 20120928
  Serious: Yes (Hospitalization, Other)
  Sender: FDA-Public Use
  Company Number: US-BAYER-201024603NA

PATIENT
  Age: 18 Year
  Sex: Female
  Weight: 99.773 kg

DRUGS (15)
  1. NORGESTIMATE AND ETHINYL ESTRADIOL [Concomitant]
     Dosage: UNK UNK, QD
  2. YASMIN [Suspect]
     Indication: CONTRACEPTION
     Dosage: UNK UNK, UNK
     Route: 048
     Dates: start: 20060101, end: 20090201
  3. YAZ [Suspect]
     Indication: CONTRACEPTION
     Dosage: UNK
     Route: 048
     Dates: start: 20060101, end: 20090201
  4. PROPOXYPHENE NAPSYLATE W/ ACETAMINOPHEN [Concomitant]
     Dosage: 100-650
     Dates: start: 20040525
  5. ATUSS-2 DX [Concomitant]
     Indication: COUGH
     Dosage: 1.5 - 2 TSP (INTERPRETED AS TEASPOONS) Q (INTERPRETED AS EVERY) 12H PRN (INTERPRETED AS NEEDED)
     Dates: start: 20040331
  6. ST. JOHN'S WORT [Concomitant]
  7. LEVOTHYROXINE SODIUM [Concomitant]
     Dosage: 75 ?G, UNK
  8. MEDICIDIN-D [Concomitant]
     Indication: VASOMOTOR RHINITIS
     Dosage: 2 TID
     Dates: start: 20040331
  9. TROMETAMOL [Concomitant]
  10. DROSPIRENONE AND ETHINYL ESTRADIOL [Suspect]
     Indication: CONTRACEPTION
  11. AMOXICILLIN [Concomitant]
     Indication: VASOMOTOR RHINITIS
     Dosage: 250 MG, TID
     Dates: start: 20040331
  12. METFORMIN HYDROCHLORIDE [Concomitant]
     Dosage: 500 MG, BID
  13. ACIPHEX [Concomitant]
     Dosage: 20 MG, PER DAY
     Dates: start: 20040426
  14. DIPHENHYDRAMINE HYDROCHLORIDE [Concomitant]
  15. KETOROLAC [Concomitant]

REACTIONS (6)
  - VENOUS THROMBOSIS LIMB [None]
  - CHEST PAIN [None]
  - HAEMARTHROSIS [None]
  - PULMONARY EMBOLISM [None]
  - CHOLECYSTECTOMY [None]
  - CHOLELITHIASIS [None]
